FAERS Safety Report 7173242-2 (Version None)
Quarter: 2010Q4

REPORT INFORMATION
  Report Type: 
  Country: None (occurrence: None)
  Receive Date: 20101208
  Receipt Date: 20101122
  Transmission Date: 20110411
  Serious: Yes (Hospitalization)
  Sender: FDA-Public Use
  Company Number: 2010MA004805

PATIENT
  Age: 75 Year
  Sex: Male

DRUGS (4)
  1. ALPRAZOLAM [Suspect]
     Indication: SUICIDE ATTEMPT
     Dosage: 40 ML, 1X, PO
     Route: 048
     Dates: start: 20100914, end: 20100914
  2. XERISTAR [Concomitant]
  3. LENDORMIN [Concomitant]
  4. METFORMIN [Concomitant]

REACTIONS (7)
  - ALTERED STATE OF CONSCIOUSNESS [None]
  - BLOOD GLUCOSE INCREASED [None]
  - HAEMOGLOBIN DECREASED [None]
  - INTENTIONAL OVERDOSE [None]
  - SOMNOLENCE [None]
  - SOPOR [None]
  - SUICIDE ATTEMPT [None]
